FAERS Safety Report 5590258-8 (Version None)
Quarter: 2008Q1

REPORT INFORMATION
  Report Type: 
  Country: None (occurrence: None)
  Receive Date: 20080114
  Receipt Date: 20080108
  Transmission Date: 20080703
  Serious: Yes (Death)
  Sender: FDA-Public Use
  Company Number: US-ASTRAZENECA-2007UW28464

PATIENT
  Age: 54 Year
  Sex: Female
  Weight: 45.4 kg

DRUGS (21)
  1. SEROQUEL [Suspect]
     Indication: DISSOCIATIVE IDENTITY DISORDER
     Route: 048
     Dates: start: 20020601
  2. SEROQUEL [Suspect]
     Indication: BIPOLAR DISORDER
     Route: 048
     Dates: start: 20020601
  3. SEROQUEL [Suspect]
     Indication: AFFECTIVE DISORDER
     Route: 048
     Dates: start: 20020601
  4. CLONAZEPAM [Concomitant]
  5. AMBIEN [Concomitant]
     Indication: INSOMNIA
  6. EFFEXOR XR [Concomitant]
     Indication: DEPRESSION
     Route: 048
     Dates: start: 20020601
  7. ZETIA [Concomitant]
  8. ATENOLOL [Concomitant]
  9. COUMADIN [Concomitant]
  10. REMERON [Concomitant]
     Indication: DEPRESSION
     Route: 048
     Dates: start: 20020601
  11. BUSPAR [Concomitant]
  12. FENTANYL TRANSDERMAL PATCH [Concomitant]
  13. TIVANAEINE [Concomitant]
  14. HYDROCOAPA [Concomitant]
  15. FORTICOL NASAL SPRAY [Concomitant]
  16. RHINOCORT [Concomitant]
  17. ATROVENT [Concomitant]
  18. ACTIVA [Concomitant]
  19. COMBIVENT [Concomitant]
     Route: 055
  20. ALBUTEROL [Concomitant]
     Route: 055
  21. TOPAMAX [Concomitant]
     Indication: MIGRAINE
     Route: 048
     Dates: start: 20020601

REACTIONS (2)
  - DEATH [None]
  - INSOMNIA [None]
